FAERS Safety Report 4476818-6 (Version None)
Quarter: 2004Q4

REPORT INFORMATION
  Report Type: 
  Country: None (occurrence: None)
  Receive Date: 20041012
  Receipt Date: 20041001
  Transmission Date: 20050328
  Serious: No
  Sender: FDA-Public Use
  Company Number: 2004UW20684

PATIENT
  Age: 44 Year
  Sex: Female
  Weight: 58.9676 kg

DRUGS (8)
  1. NEXIUM [Suspect]
     Indication: GASTROOESOPHAGEAL REFLUX DISEASE
     Dosage: 40 MG PO
     Route: 048
     Dates: start: 20040601
  2. LISINOPRIL [Concomitant]
  3. HYOSCAYMINE SULFATE [Concomitant]
  4. NEURONTIN [Concomitant]
  5. TRAMADOL HCL [Concomitant]
  6. NAPROXEN /POL/ [Concomitant]
  7. BEXTRA [Concomitant]
  8. SINUS MEDICATION [Concomitant]

REACTIONS (6)
  - ABDOMINAL PAIN [None]
  - LOSS OF CONSCIOUSNESS [None]
  - PLATELET COUNT DECREASED [None]
  - RED BLOOD CELL COUNT DECREASED [None]
  - ULCER [None]
  - WHITE BLOOD CELL COUNT DECREASED [None]
